FAERS Safety Report 16093954 (Version 1)
Quarter: 2019Q1

REPORT INFORMATION
  Report Type: Report from Study
  Country: ES (occurrence: ES)
  Receive Date: 20190320
  Receipt Date: 20190320
  Transmission Date: 20190418
  Serious: Yes (Death)
  Sender: FDA-Public Use
  Company Number: ES-ROCHE-2132249

PATIENT
  Age: 44 Year
  Sex: Female

DRUGS (3)
  1. ERIBULIN [Concomitant]
     Active Substance: ERIBULIN
     Dosage: DAY 1 AND 8
     Route: 042
     Dates: start: 20180515, end: 20180720
  2. CAPECITABINE. [Suspect]
     Active Substance: CAPECITABINE
     Indication: PRODUCT USED FOR UNKNOWN INDICATION
     Route: 065
     Dates: start: 20180313, end: 20180514
  3. METHOTREXATE. [Concomitant]
     Active Substance: METHOTREXATE
     Route: 042
     Dates: start: 20180727, end: 20180823

REACTIONS (1)
  - Disease progression [Fatal]

NARRATIVE: CASE EVENT DATE: 201808
